FAERS Safety Report 7036925-0 (Version None)
Quarter: 2010Q4

REPORT INFORMATION
  Report Type: 
  Country: None (occurrence: None)
  Receive Date: 20101011
  Receipt Date: 20101001
  Transmission Date: 20110411
  Serious: Yes (Hospitalization)
  Sender: FDA-Public Use
  Company Number: US-ASTRAZENECA-2010SE41661

PATIENT
  Age: 82 Year
  Sex: Male
  Weight: 90.7 kg

DRUGS (6)
  1. ZOLADEX [Suspect]
     Indication: PROSTATE CANCER
     Route: 058
     Dates: start: 20100201
  2. PRILOSEC OTC [Concomitant]
     Route: 048
  3. ADVAIR DISKUS 100/50 [Concomitant]
     Indication: CHRONIC OBSTRUCTIVE PULMONARY DISEASE
     Dosage: 250/50 ONE PUFF BID
     Dates: start: 20100301
  4. HYDROCORTISONE EXTERNAL CREAM [Concomitant]
     Route: 061
  5. KETOCONAZOLE SHAMPOO [Concomitant]
     Route: 061
  6. PROAIR HFA [Concomitant]
     Dosage: 108 TWO PUFFS EVERY 4-6 HOURS

REACTIONS (8)
  - ATRIOVENTRICULAR BLOCK SECOND DEGREE [None]
  - BRADYCARDIA [None]
  - CERVICOBRACHIAL SYNDROME [None]
  - CHRONIC OBSTRUCTIVE PULMONARY DISEASE [None]
  - DYSPNOEA [None]
  - HOT FLUSH [None]
  - ORTHOSTATIC HYPOTENSION [None]
  - SYNCOPE [None]
